FAERS Safety Report 22530790 (Version 11)
Quarter: 2024Q1

REPORT INFORMATION
  Report Type: Spontaneous
  Country: CA (occurrence: CA)
  Receive Date: 20230607
  Receipt Date: 20240301
  Transmission Date: 20240410
  Serious: Yes (Other)
  Sender: FDA-Public Use
  Company Number: CA-PFIZER INC-PV202200042447

PATIENT
  Age: 49 Year
  Sex: Male
  Weight: 156.7 kg

DRUGS (11)
  1. SUTENT [Suspect]
     Active Substance: SUNITINIB MALATE
     Indication: Metastatic renal cell carcinoma
     Dosage: DAILY FOR 14 DAYS, OFF FOR 7 DAYS
     Route: 048
     Dates: start: 20220812
  2. SUTENT [Suspect]
     Active Substance: SUNITINIB MALATE
     Dosage: DAILY FOR 14 DAYS, OFF 7 DAYS
     Route: 048
     Dates: start: 20221012
  3. SUTENT [Suspect]
     Active Substance: SUNITINIB MALATE
     Dosage: DAILY FOR 14 DAYS, OFF FOR 7 DAYS
     Route: 048
  4. SUTENT [Suspect]
     Active Substance: SUNITINIB MALATE
     Dosage: 12.5 MG AND 25 MG, DAILY FOR 14 DAYS, OFF 7 DAYS
     Route: 048
  5. SUTENT [Suspect]
     Active Substance: SUNITINIB MALATE
     Dosage: DAILY FOR 14 DAYS, OFF 7 DAYS
     Route: 048
  6. SUTENT [Suspect]
     Active Substance: SUNITINIB MALATE
     Dosage: UNK
     Route: 048
     Dates: start: 20230615
  7. SUTENT [Suspect]
     Active Substance: SUNITINIB MALATE
     Dosage: CYCLE:15(1 CAP (50 MG TOTAL) DAILY FOR 14 DAYS,STOP FOR 7 DAYS
     Route: 048
  8. SUTENT [Suspect]
     Active Substance: SUNITINIB MALATE
     Dosage: CYCLE: DAY 1, CYCLE:18, DAILY FOR 14 DAYS,STOP FOR 7 DAYS
     Route: 048
  9. SUTENT [Suspect]
     Active Substance: SUNITINIB MALATE
     Dosage: 12.5 MG AND 25 MG, DAILY FOR 14 DAYS, OFF 7 DAYS)
     Route: 048
  10. LOPERAMIDE [Concomitant]
     Active Substance: LOPERAMIDE
     Dosage: UNK
  11. METOCLOPRAMIDE [Concomitant]
     Active Substance: METOCLOPRAMIDE
     Dosage: UNK

REACTIONS (4)
  - Pneumonia [Unknown]
  - Obstructive airways disorder [Unknown]
  - Neoplasm progression [Unknown]
  - Off label use [Unknown]

NARRATIVE: CASE EVENT DATE: 20230101
